FAERS Safety Report 8927484 (Version 1)
Quarter: 2012Q4

REPORT INFORMATION
  Report Type: 
  Country: DE (occurrence: DE)
  Receive Date: 20121127
  Receipt Date: 20121127
  Transmission Date: 20130627
  Serious: Yes (Hospitalization, Other)
  Sender: FDA-Public Use
  Company Number: DE-ROCHE-860313682001

PATIENT
  Age: 44 Year
  Sex: Female
  Weight: 85 kg

DRUGS (2)
  1. ROCEPHIN [Suspect]
     Indication: INFECTION
     Route: 042
     Dates: start: 19861017, end: 19861021
  2. NOVALGIN [Concomitant]
     Indication: FEBRILE INFECTION
     Route: 042
     Dates: start: 19861017, end: 19861017

REACTIONS (2)
  - Jaundice [Recovering/Resolving]
  - Transaminases increased [Unknown]
